FAERS Safety Report 9158710 (Version 1)
Quarter: 2013Q1

REPORT INFORMATION
  Report Type: Spontaneous
  Country: IT (occurrence: IT)
  Receive Date: 20130312
  Receipt Date: 20130312
  Transmission Date: 20140127
  Serious: Yes (Other)
  Sender: FDA-Public Use
  Company Number: IT-MYLANLABS-2013S1004756

PATIENT
  Age: 63 Year
  Sex: Male

DRUGS (8)
  1. LEVOFLOXACIN [Suspect]
     Indication: BRONCHOPNEUMONIA
     Route: 048
     Dates: start: 20130220, end: 20130223
  2. DELTACORTENE [Concomitant]
     Indication: BRONCHOPNEUMONIA
  3. FLUIMUCIL [Concomitant]
     Indication: BRONCHOPNEUMONIA
  4. ENAPREN [Concomitant]
     Indication: PRODUCT USED FOR UNKNOWN INDICATION
  5. ANTRA /00661201/ [Concomitant]
     Indication: HIATUS HERNIA
  6. XANAX [Concomitant]
     Indication: PANIC ATTACK
     Dosage: MG/ML
  7. IMODIUM [Concomitant]
     Indication: PRODUCT USED FOR UNKNOWN INDICATION
  8. DIOSMECTAL [Concomitant]
     Indication: PRODUCT USED FOR UNKNOWN INDICATION

REACTIONS (3)
  - Diarrhoea [Unknown]
  - Enteritis [Unknown]
  - Dysentery [Unknown]
